FAERS Safety Report 8229634-3 (Version None)
Quarter: 2012Q1

REPORT INFORMATION
  Report Type: 
  Country: None (occurrence: None)
  Receive Date: 20120322
  Receipt Date: 20120316
  Transmission Date: 20120608
  Serious: Yes (Other)
  Sender: FDA-Public Use
  Company Number: PHEH2012US006023

PATIENT
  Sex: Female

DRUGS (17)
  1. OXYCODONE HCL [Concomitant]
  2. CITALOPRAM HYDROBROMIDE [Concomitant]
  3. SIMVASTATIN [Concomitant]
  4. CALCIUM CARBONATE [Concomitant]
  5. FOLIC ACID [Concomitant]
  6. VITAMIN D [Concomitant]
  7. METOPROLOL SUCCINATE [Concomitant]
  8. PROMETHAZINE [Concomitant]
  9. FISH OIL [Concomitant]
  10. VITAMIN B-12 [Concomitant]
  11. VITAMIN D [Concomitant]
  12. RECLAST [Suspect]
     Dosage: UNK
     Dates: start: 20111123
  13. ASCORBIC ACID [Concomitant]
  14. PLAVIX [Concomitant]
  15. EYE DROPS [Concomitant]
  16. LISINOPRIL [Concomitant]
  17. VITAMIN B6 [Concomitant]

REACTIONS (1)
  - HIP FRACTURE [None]
